FAERS Safety Report 4408662-X (Version None)
Quarter: 2004Q3

REPORT INFORMATION
  Report Type: 
  Country: None (occurrence: None)
  Receive Date: 20040722
  Receipt Date: 20040708
  Transmission Date: 20050211
  Serious: Yes (Hospitalization)
  Sender: FDA-Public Use
  Company Number: 174181

PATIENT
  Age: 63 Year
  Sex: Female
  Weight: 72.5755 kg

DRUGS (3)
  1. AVONEX [Suspect]
     Indication: MULTIPLE SCLEROSIS
     Dosage: 30 MCG QW IM
     Route: 030
     Dates: start: 19990101
  2. MECLIZINE HYDROCHLORIDE [Concomitant]
  3. ESTROGEN [Concomitant]

REACTIONS (6)
  - BALANCE DISORDER [None]
  - BLOOD CHOLESTEROL INCREASED [None]
  - FALL [None]
  - INFLUENZA LIKE ILLNESS [None]
  - LOWER LIMB FRACTURE [None]
  - THYROID FUNCTION TEST ABNORMAL [None]
